FAERS Safety Report 9550101 (Version 2)
Quarter: 2013Q4

REPORT INFORMATION
  Report Type: Report from Study
  Country: CO (occurrence: CO)
  Receive Date: 20130924
  Receipt Date: 20131219
  Transmission Date: 20140711
  Serious: Yes (Other)
  Sender: FDA-Public Use
  Company Number: CO-ROCHE-1278407

PATIENT
  Age: 56 Year
  Sex: Female
  Weight: 72 kg

DRUGS (8)
  1. LUCENTIS [Suspect]
     Indication: PRODUCT USED FOR UNKNOWN INDICATION
     Route: 050
     Dates: start: 20120816
  2. LUCENTIS [Suspect]
     Route: 050
     Dates: start: 201209
  3. LUCENTIS [Suspect]
     Route: 050
     Dates: start: 20130516
  4. LUCENTIS [Suspect]
     Route: 050
  5. NAPROXEN [Concomitant]
     Route: 065
  6. DICLOFENAC [Concomitant]
  7. OMEPRAZOLE [Concomitant]
  8. IBUPROFEN [Concomitant]

REACTIONS (11)
  - Bone pain [Unknown]
  - Dizziness [Unknown]
  - Head discomfort [Unknown]
  - Ocular discomfort [Unknown]
  - Eye irritation [Unknown]
  - Blindness [Unknown]
  - Headache [Unknown]
  - Lacrimation increased [Unknown]
  - Vision blurred [Unknown]
  - Pruritus [Unknown]
  - Hypersensitivity [Unknown]
